FAERS Safety Report 9643681 (Version 1)
Quarter: 2013Q4

REPORT INFORMATION
  Report Type: Spontaneous
  Country: US (occurrence: US)
  Receive Date: 20131024
  Receipt Date: 20131024
  Transmission Date: 20140711
  Serious: Yes (Other)
  Sender: FDA-Public Use
  Company Number: US-TEVA-440038USA

PATIENT
  Age: 20 Year
  Sex: Female
  Weight: 56.3 kg

DRUGS (2)
  1. PARAGARD 380A [Suspect]
     Indication: CONTRACEPTION
     Route: 015
     Dates: start: 20130624, end: 20131022
  2. HYDROXYZINE [Concomitant]
     Indication: ECZEMA

REACTIONS (2)
  - Device dislocation [Recovered/Resolved]
  - Oligomenorrhoea [Not Recovered/Not Resolved]
